FAERS Safety Report 20089798 (Version 1)
Quarter: 2021Q4

REPORT INFORMATION
  Report Type: Spontaneous
  Country: US (occurrence: US)
  Receive Date: 20211119
  Receipt Date: 20211119
  Transmission Date: 20220303
  Serious: Yes (Other)
  Sender: FDA-Public Use
  Company Number: US-GLAXOSMITHKLINE-US2021GSK235835

PATIENT
  Sex: Female

DRUGS (8)
  1. ZANTAC [Suspect]
     Active Substance: RANITIDINE HYDROCHLORIDE
     Indication: Dyspepsia
     Dosage: 25 MG, PERIODS OF NON-USE (AT LEAST 3 MONTHS WITHOUT USE)
     Route: 065
     Dates: start: 199601, end: 201601
  2. ZANTAC [Suspect]
     Active Substance: RANITIDINE HYDROCHLORIDE
     Indication: Gastrooesophageal reflux disease
     Dosage: 75 MG, PERIODS OF NON-USE (AT LEAST 3 MONTHS WITHOUT USE)
     Route: 065
     Dates: start: 199601, end: 201601
  3. ZANTAC [Suspect]
     Active Substance: RANITIDINE HYDROCHLORIDE
     Indication: Dyspepsia
     Dosage: 25 MG, PERIODS OF NON-USE (AT LEAST 3 MONTHS WITHOUT USE)
     Route: 065
     Dates: start: 199601, end: 201601
  4. ZANTAC [Suspect]
     Active Substance: RANITIDINE HYDROCHLORIDE
     Indication: Gastrooesophageal reflux disease
     Dosage: 75 MG, PERIODS OF NON-USE (AT LEAST 3 MONTHS WITHOUT USE)
     Route: 065
     Dates: start: 199601, end: 201601
  5. RANITIDINE [Suspect]
     Active Substance: RANITIDINE
     Indication: Dyspepsia
     Dosage: UNK, PERIODS OF NON-USE (AT LEAST 3 MONTHS WITHOUT USE)
     Route: 065
     Dates: start: 199601, end: 201601
  6. RANITIDINE [Suspect]
     Active Substance: RANITIDINE
     Indication: Gastrooesophageal reflux disease
  7. RANITIDINE [Suspect]
     Active Substance: RANITIDINE
     Indication: Dyspepsia
     Dosage: UNK, PERIODS OF NON-USE (AT LEAST 3 MONTHS WITHOUT USE)
     Route: 065
     Dates: start: 199601, end: 201601
  8. RANITIDINE [Suspect]
     Active Substance: RANITIDINE
     Indication: Gastrooesophageal reflux disease

REACTIONS (1)
  - Breast cancer [Unknown]
